FAERS Safety Report 7403954-4 (Version None)
Quarter: 2011Q2

REPORT INFORMATION
  Report Type: 
  Country: None (occurrence: None)
  Receive Date: 20110408
  Receipt Date: 20110401
  Transmission Date: 20111010
  Serious: Yes (Other)
  Sender: FDA-Public Use
  Company Number: US-ASTRAZENECA-2011SE08270

PATIENT
  Age: 62 Year
  Sex: Female

DRUGS (11)
  1. OMEPRAZOLE [Concomitant]
  2. HYDROCHLOROTHIAZIDE [Concomitant]
  3. LOSARTAN POTASSIUM [Concomitant]
  4. ASTELIN [Concomitant]
  5. TOPAMAX [Concomitant]
  6. LABETALOL [Concomitant]
  7. ZOLPIDEM [Concomitant]
  8. CIPRO [Concomitant]
  9. SYMBICORT [Suspect]
     Indication: ASTHMA
     Dosage: TOTAL DAILY DOSE 2 PUFFS, BID
     Route: 055
     Dates: start: 20110207
  10. ZYRTEC [Concomitant]
  11. XOPENEX [Concomitant]

REACTIONS (3)
  - SYNCOPE [None]
  - HEAD INJURY [None]
  - TREMOR [None]
